FAERS Safety Report 22362677 (Version 1)
Quarter: 2023Q2

REPORT INFORMATION
  Report Type: Spontaneous
  Country: JP (occurrence: JP)
  Receive Date: 20230524
  Receipt Date: 20230524
  Transmission Date: 20230722
  Serious: Yes (Other)
  Sender: FDA-Public Use
  Company Number: JP-002147023-NVSJ2021JP017199

PATIENT
  Age: 77 Year
  Sex: Male

DRUGS (2)
  1. BEOVU [Suspect]
     Active Substance: BROLUCIZUMAB-DBLL
     Indication: Polypoidal choroidal vasculopathy
     Dosage: 6 MG
     Route: 031
  2. BEOVU [Suspect]
     Active Substance: BROLUCIZUMAB-DBLL
     Dosage: 6 MG
     Route: 031

REACTIONS (5)
  - Choroidal haemorrhage [Unknown]
  - Vitreous haemorrhage [Unknown]
  - Polypoidal choroidal vasculopathy [Unknown]
  - Disease progression [Unknown]
  - Visual acuity reduced transiently [Recovering/Resolving]
